FAERS Safety Report 12717113 (Version 1)
Quarter: 2016Q3

REPORT INFORMATION
  Report Type: Report from Study
  Country: BR (occurrence: BR)
  Receive Date: 20160906
  Receipt Date: 20160906
  Transmission Date: 20161109
  Serious: Yes (Death)
  Sender: FDA-Public Use
  Company Number: PHHY2016BR122323

PATIENT
  Age: 92 Year
  Sex: Female
  Weight: 74 kg

DRUGS (3)
  1. EXELON PATCH [Suspect]
     Active Substance: RIVASTIGMINE
     Indication: PARKINSON^S DISEASE
     Dosage: 4.6 MG QHS, PATCH 5 (CM2)
     Route: 062
  2. EXELON PATCH [Suspect]
     Active Substance: RIVASTIGMINE
     Dosage: UNK UNK, QD
     Route: 062
  3. EXELON PATCH [Suspect]
     Active Substance: RIVASTIGMINE
     Dosage: 13.3 MG QD, PATCH 15 (CM2)
     Route: 062

REACTIONS (3)
  - Product use issue [Unknown]
  - Cerebrovascular accident [Fatal]
  - Cerebral thrombosis [Fatal]

NARRATIVE: CASE EVENT DATE: 20160708
